FAERS Safety Report 20602673 (Version 3)
Quarter: 2022Q2

REPORT INFORMATION
  Report Type: Spontaneous
  Country: US (occurrence: None)
  Receive Date: 20220316
  Receipt Date: 20220427
  Transmission Date: 20220720
  Serious: No
  Sender: FDA-Public Use
  Company Number: 2022A073063

PATIENT
  Age: 72 Year
  Sex: Female
  Weight: 90.7 kg

DRUGS (3)
  1. BYDUREON BCISE [Suspect]
     Active Substance: EXENATIDE
     Indication: Type 2 diabetes mellitus
     Route: 058
     Dates: start: 2012
  2. CRESTOR [Suspect]
     Active Substance: ROSUVASTATIN CALCIUM
     Indication: Blood cholesterol increased
     Route: 048
  3. DULOXETINE [Concomitant]
     Active Substance: DULOXETINE
     Indication: Neuropathy peripheral
     Route: 065

REACTIONS (8)
  - Neuropathy peripheral [Unknown]
  - Overweight [Unknown]
  - Glycosylated haemoglobin increased [Unknown]
  - Injection site haemorrhage [Unknown]
  - Drug dose omission by device [Not Recovered/Not Resolved]
  - Wrong technique in device usage process [Unknown]
  - Multiple use of single-use product [Unknown]
  - Device delivery system issue [Unknown]

NARRATIVE: CASE EVENT DATE: 20180101
